FAERS Safety Report 9366301 (Version 1)
Quarter: 2013Q2

REPORT INFORMATION
  Report Type: Spontaneous
  Country: US (occurrence: US)
  Receive Date: 20130625
  Receipt Date: 20130625
  Transmission Date: 20140414
  Serious: No
  Sender: FDA-Public Use
  Company Number: US-GLAXOSMITHKLINE-A0988681A

PATIENT
  Sex: Male

DRUGS (2)
  1. VERAMYST [Suspect]
     Indication: ADVERSE DRUG REACTION
     Route: 065
  2. BUTRANS [Suspect]
     Indication: PAIN
     Route: 065

REACTIONS (2)
  - Drug interaction [Unknown]
  - Off label use [Unknown]
